FAERS Safety Report 7341987-7 (Version None)
Quarter: 2011Q1

REPORT INFORMATION
  Report Type: 
  Country: None (occurrence: None)
  Receive Date: 20110309
  Receipt Date: 20110228
  Transmission Date: 20110831
  Serious: Yes (Other)
  Sender: FDA-Public Use
  Company Number: US-ASTRAZENECA-2011SE10920

PATIENT
  Age: 52 Year
  Sex: Male
  Weight: 84 kg

DRUGS (10)
  1. SEROQUEL [Suspect]
     Dosage: TWO TIMES DAILY
     Route: 048
     Dates: end: 20110101
  2. ROZEREM [Concomitant]
  3. PERCOCET [Concomitant]
     Indication: BACK PAIN
  4. OXYCODONE [Concomitant]
     Indication: BACK PAIN
  5. SEROQUEL [Interacting]
     Dosage: ONCE EVERY NIGHT
     Route: 048
     Dates: start: 20110101
  6. CHANTIX [Interacting]
     Indication: EX-TOBACCO USER
     Route: 048
     Dates: start: 20110101, end: 20110101
  7. CHANTIX [Interacting]
     Route: 048
     Dates: start: 20110101
  8. TYLENOL [Concomitant]
     Indication: BACK PAIN
  9. XANAX [Concomitant]
     Dosage: THREE TIMES A DAY
  10. SAPHRIS [Concomitant]
     Dosage: TWO TIMES A DAY
     Route: 060

REACTIONS (4)
  - DRUG INTERACTION [None]
  - MYALGIA [None]
  - PAIN IN EXTREMITY [None]
  - SOMNOLENCE [None]
